FAERS Safety Report 24356844 (Version 1)
Quarter: 2024Q3

REPORT INFORMATION
  Report Type: Other
  Country: ES (occurrence: ES)
  Receive Date: 20240924
  Receipt Date: 20240924
  Transmission Date: 20241016
  Serious: Yes (Other)
  Sender: EYWA PHARMA
  Company Number: ES-Eywa Pharma Inc.-2161975

PATIENT

DRUGS (1)
  1. ACETAZOLAMIDE [Suspect]
     Active Substance: ACETAZOLAMIDE
     Indication: Glaucoma

REACTIONS (1)
  - Pulmonary oedema [Not Recovered/Not Resolved]
